FAERS Safety Report 17686431 (Version 3)
Quarter: 2020Q4

REPORT INFORMATION
  Report Type: Spontaneous
  Country: US (occurrence: US)
  Receive Date: 20200420
  Receipt Date: 20201224
  Transmission Date: 20210113
  Serious: Yes (Disabling, Other)
  Sender: FDA-Public Use
  Company Number: US-ADVANZ PHARMA-202004003537

PATIENT

DRUGS (1)
  1. HYDROXYCHLOROQUINE [Suspect]
     Active Substance: HYDROXYCHLOROQUINE
     Indication: SYSTEMIC LUPUS ERYTHEMATOSUS
     Dosage: 800 MG, QD (APPROXIMATELY 13.6 MG/KG/DAY FOR 8 YEARS )
     Route: 065

REACTIONS (7)
  - Central vision loss [Not Recovered/Not Resolved]
  - Retinopathy [Not Recovered/Not Resolved]
  - Overdose [Not Recovered/Not Resolved]
  - Vision blurred [Not Recovered/Not Resolved]
  - Macular degeneration [Not Recovered/Not Resolved]
  - Maculopathy [Not Recovered/Not Resolved]
  - Retinal toxicity [Not Recovered/Not Resolved]
